FAERS Safety Report 8484072-3 (Version None)
Quarter: 2012Q3

REPORT INFORMATION
  Report Type: 
  Country: None (occurrence: None)
  Receive Date: 20120703
  Receipt Date: 20120626
  Transmission Date: 20120928
  Serious: Yes (Other)
  Sender: FDA-Public Use
  Company Number: BR-ELI_LILLY_AND_COMPANY-BR201204009147

PATIENT
  Sex: Female

DRUGS (4)
  1. LANTUS [Concomitant]
     Dosage: 30 IU, BID
     Route: 065
  2. HUMALOG [Suspect]
     Dosage: 12 IU, TID
     Route: 058
  3. HUMULIN N [Suspect]
     Dosage: 80 IU, TID
     Route: 058
  4. HUMULIN R [Suspect]
     Dosage: UNK, UNKNOWN
     Route: 058

REACTIONS (4)
  - CARDIAC DISORDER [None]
  - LIPOMA [None]
  - BLOOD GLUCOSE INCREASED [None]
  - DRUG INEFFECTIVE [None]
